FAERS Safety Report 19943195 (Version 1)
Quarter: 2021Q4

REPORT INFORMATION
  Report Type: Other
  Country: GB (occurrence: GB)
  Receive Date: 20211012
  Receipt Date: 20211012
  Transmission Date: 20220304
  Serious: Yes (Other)
  Sender: FDA-Public Use
  Company Number: None

PATIENT
  Age: 20 Year
  Sex: Female
  Weight: 61.68 kg

DRUGS (1)
  1. PREDNISOLONE [Suspect]
     Active Substance: PREDNISOLONE
     Indication: Asthma
     Dosage: 30 MILLIGRAM, UNK
     Route: 048

REACTIONS (3)
  - Heart rate increased [Unknown]
  - Condition aggravated [Unknown]
  - Dyspnoea [Unknown]
